FAERS Safety Report 4619705-2 (Version None)
Quarter: 2005Q1

REPORT INFORMATION
  Report Type: 
  Country: None (occurrence: None)
  Receive Date: 20050324
  Receipt Date: 20050309
  Transmission Date: 20050727
  Serious: Yes (Hospitalization)
  Sender: FDA-Public Use
  Company Number: DE_050315425

PATIENT
  Age: 74 Year
  Sex: Female

DRUGS (4)
  1. YENTREVE          (DULOXETINE HYDROCHLORIDE) [Suspect]
     Indication: STRESS INCONTINENCE
  2. AMBENE FOR INECTION [Concomitant]
  3. ANTIDIABETIC [Concomitant]
  4. ANTIHYPERTENSIVE [Concomitant]

REACTIONS (11)
  - ALPHA 1 GLOBULIN INCREASED [None]
  - ALPHA 2 GLOBULIN INCREASED [None]
  - BACK PAIN [None]
  - BLOOD GLUCOSE INCREASED [None]
  - BLOOD PRESSURE INCREASED [None]
  - CONDITION AGGRAVATED [None]
  - DISORIENTATION [None]
  - DRUG ERUPTION [None]
  - LACERATION [None]
  - PRURITUS [None]
  - RASH MACULO-PAPULAR [None]
